FAERS Safety Report 9020072 (Version 1)
Quarter: 2013Q1

REPORT INFORMATION
  Report Type: Spontaneous
  Country: US (occurrence: US)
  Receive Date: 20130119
  Receipt Date: 20130119
  Transmission Date: 20140127
  Serious: No
  Sender: FDA-Public Use
  Company Number: US-ALLERGAN-1211008US

PATIENT
  Age: 45 Year
  Sex: Female

DRUGS (3)
  1. BOTOX? [Suspect]
     Indication: SKIN WRINKLING
     Dosage: UNK UNK, SINGLE
     Route: 030
     Dates: start: 201206, end: 201206
  2. BOTOX? [Suspect]
     Indication: SKIN WRINKLING
  3. BOTOX? [Suspect]
     Indication: SKIN WRINKLING

REACTIONS (3)
  - Dry eye [Recovered/Resolved]
  - Ocular hyperaemia [Recovered/Resolved]
  - Vomiting [Recovered/Resolved]
